FAERS Safety Report 4885479-3 (Version None)
Quarter: 2005Q4

REPORT INFORMATION
  Report Type: 
  Country: None (occurrence: None)
  Receive Date: 20051216
  Receipt Date: 20051011
  Transmission Date: 20060501
  Serious: No
  Sender: FDA-Public Use
  Company Number: USA0510110561

PATIENT
  Age: 70 Year
  Sex: Male

DRUGS (8)
  1. CIALIS [Suspect]
     Indication: ERECTILE DYSFUNCTION
     Dosage: 20 MG AS NEEDED
     Dates: start: 20050901
  2. WARFARIN [Concomitant]
  3. METOPROLOL [Concomitant]
  4. TERAZOSIN [Concomitant]
  5. ALLOPURINOL [Concomitant]
  6. NORTRIPTYLINE HCL [Concomitant]
  7. METAGLIP [Concomitant]
  8. SIMVASTATIN [Concomitant]

REACTIONS (1)
  - DRUG INEFFECTIVE [None]
